FAERS Safety Report 4731991-7 (Version None)
Quarter: 2005Q3

REPORT INFORMATION
  Report Type: 
  Country: None (occurrence: None)
  Receive Date: 20050725
  Receipt Date: 20040730
  Transmission Date: 20060218
  Serious: Yes (Other)
  Sender: FDA-Public Use
  Company Number: WAES 0408USA00002

PATIENT
  Age: 52 Year
  Sex: Male
  Weight: 95.2554 kg

DRUGS (6)
  1. VIOXX [Suspect]
     Indication: ARTHRITIS
     Dosage: 50 MG/DAILY/PO
     Route: 048
     Dates: start: 20020807, end: 20040427
  2. MAXZIDE [Concomitant]
  3. PEPCID AC [Concomitant]
  4. SKELAXIN [Concomitant]
  5. ZOCOR [Concomitant]
  6. ASPIRIN [Concomitant]

REACTIONS (1)
  - RENAL FAILURE ACUTE [None]
